FAERS Safety Report 24040233 (Version 1)
Quarter: 2024Q3

REPORT INFORMATION
  Report Type: Spontaneous
  Country: IE (occurrence: IE)
  Receive Date: 20240702
  Receipt Date: 20240702
  Transmission Date: 20241016
  Serious: Yes (Other)
  Sender: SANOFI AVENTIS
  Company Number: IE-SA-2024SA191828

PATIENT
  Age: 16 Month
  Sex: Male
  Weight: 10 kg

DRUGS (2)
  1. ALPROLIX [Suspect]
     Active Substance: EFTRENONACOG ALFA
     Indication: Prophylaxis
     Dosage: UNK
     Dates: start: 20240319, end: 20240602
  2. ALPROLIX [Suspect]
     Active Substance: EFTRENONACOG ALFA
     Indication: Prophylaxis
     Dosage: UNK
     Dates: start: 20240319, end: 20240602

REACTIONS (2)
  - Vomiting [Not Recovered/Not Resolved]
  - Factor IX inhibition [Not Recovered/Not Resolved]

NARRATIVE: CASE EVENT DATE: 20240522
